FAERS Safety Report 21375996 (Version 1)
Quarter: 2022Q3

REPORT INFORMATION
  Report Type: Spontaneous
  Country: US (occurrence: None)
  Receive Date: 20220923
  Receipt Date: 20220923
  Transmission Date: 20221027
  Serious: No
  Sender: FDA-Public Use
  Company Number: None

PATIENT
  Age: 47 Year
  Sex: Female
  Weight: 130.5 kg

DRUGS (1)
  1. NORTRIPTYLINE HYDROCHLORIDE [Suspect]
     Active Substance: NORTRIPTYLINE HYDROCHLORIDE
     Indication: Headache
     Dosage: OTHER QUANTITY : 1 CAPSULE(S);?FREQUENCY : AT BEDTIME;?
     Route: 048
     Dates: start: 20200901

REACTIONS (14)
  - Gastrooesophageal reflux disease [None]
  - Flatulence [None]
  - Dyspepsia [None]
  - Syncope [None]
  - Dizziness [None]
  - Palpitations [None]
  - Panic attack [None]
  - Sedation [None]
  - Speech disorder [None]
  - Photosensitivity reaction [None]
  - Aphasia [None]
  - Anxiety [None]
  - Dysarthria [None]
  - Product substitution issue [None]

NARRATIVE: CASE EVENT DATE: 20220921
